FAERS Safety Report 6973768-8 (Version None)
Quarter: 2010Q3

REPORT INFORMATION
  Report Type: 
  Country: None (occurrence: None)
  Receive Date: 20100909
  Receipt Date: 20100901
  Transmission Date: 20110219
  Serious: Yes (Death, Hospitalization)
  Sender: FDA-Public Use
  Company Number: A0849750A

PATIENT
  Age: 66 Year
  Sex: Male
  Weight: 101.8 kg

DRUGS (1)
  1. AVANDIA [Suspect]
     Dosage: 8MG PER DAY
     Route: 048
     Dates: start: 20020101, end: 20070709

REACTIONS (5)
  - CARDIAC DISORDER [None]
  - CARDIAC FAILURE CONGESTIVE [None]
  - DEATH [None]
  - MYOCARDIAL INFARCTION [None]
  - VENTRICULAR TACHYCARDIA [None]
